FAERS Safety Report 9530623 (Version 3)
Quarter: 2013Q4

REPORT INFORMATION
  Report Type: Spontaneous
  Country: US (occurrence: US)
  Receive Date: 20130918
  Receipt Date: 20131127
  Transmission Date: 20140711
  Serious: No
  Sender: FDA-Public Use
  Company Number: US-B.I. PHARMACEUTICALS,INC./RIDGEFIELD-2011-BP-28074BP

PATIENT
  Age: 58 Year
  Sex: Female

DRUGS (3)
  1. COMBIVENT INHALATION AEROSOL [Suspect]
     Indication: CHRONIC OBSTRUCTIVE PULMONARY DISEASE
     Dosage: 8 PUF
     Route: 055
     Dates: start: 1999
  2. FLOVENT HFA [Concomitant]
     Indication: ASTHMA
     Dosage: 4 PUF
     Route: 055
     Dates: start: 20080324
  3. CREON [Concomitant]
     Dates: start: 20111004

REACTIONS (3)
  - Dyspnoea [Not Recovered/Not Resolved]
  - Dyspnoea [Unknown]
  - Product quality issue [Not Recovered/Not Resolved]
